FAERS Safety Report 9176163 (Version 1)
Quarter: 2013Q1

REPORT INFORMATION
  Report Type: Spontaneous
  Country: BR (occurrence: BR)
  Receive Date: 20130321
  Receipt Date: 20130321
  Transmission Date: 20140127
  Serious: Yes (Other)
  Sender: FDA-Public Use
  Company Number: PHHY2013BR026134

PATIENT
  Sex: Male
  Weight: 51 kg

DRUGS (4)
  1. ENALAPRIL MALEATE [Suspect]
     Indication: HYPERTENSION
     Dosage: 1 DF, Q12H
     Route: 048
  2. CARBAMAZEPINE [Concomitant]
     Indication: CONVULSION
     Dosage: 4 DF, 1 DF IN MORNING 1 DF IN AFTERNOON 2 DF AT NIGHT
  3. CLONAZEPAM [Concomitant]
     Indication: CONVULSION
     Dosage: 1 DF, QHS
  4. IMIPRAMINE [Concomitant]
     Indication: DEPRESSION
     Dosage: 3 DF, QHS

REACTIONS (2)
  - Convulsion [Recovering/Resolving]
  - Cough [Recovering/Resolving]
